FAERS Safety Report 20091855 (Version 1)
Quarter: 2021Q4

REPORT INFORMATION
  Report Type: Spontaneous
  Country: IN (occurrence: IN)
  Receive Date: 20211119
  Receipt Date: 20211119
  Transmission Date: 20220304
  Serious: Yes (Death, Hospitalization, Other)
  Sender: FDA-Public Use
  Company Number: IN-PFIZER INC-2018319796

PATIENT
  Age: 56 Year
  Sex: Male

DRUGS (1)
  1. CRIZOTINIB [Suspect]
     Active Substance: CRIZOTINIB
     Indication: Neoplasm
     Dosage: 250 MG, 2X/DAY
     Route: 048
     Dates: start: 20171016

REACTIONS (10)
  - Death [Fatal]
  - Dyspnoea [Unknown]
  - Malaise [Unknown]
  - Ocular hyperaemia [Unknown]
  - Blindness [Unknown]
  - Visual impairment [Unknown]
  - Mobility decreased [Unknown]
  - Feeding disorder [Unknown]
  - Auditory disorder [Unknown]
  - Back pain [Unknown]

NARRATIVE: CASE EVENT DATE: 20210801
